FAERS Safety Report 21031029 (Version 2)
Quarter: 2023Q2

REPORT INFORMATION
  Report Type: Spontaneous
  Country: US (occurrence: None)
  Receive Date: 20220701
  Receipt Date: 20230517
  Transmission Date: 20230721
  Serious: No
  Sender: FDA-Public Use
  Company Number: US-ROCHE-3060044

PATIENT
  Age: 55 Year
  Sex: Female

DRUGS (3)
  1. ACTEMRA [Suspect]
     Active Substance: TOCILIZUMAB
     Indication: Psoriatic arthropathy
     Dosage: 162 MG WEEKLY ONGOING : YES
     Route: 058
     Dates: start: 202201
  2. ACTEMRA [Suspect]
     Active Substance: TOCILIZUMAB
  3. ACTEMRA [Suspect]
     Active Substance: TOCILIZUMAB

REACTIONS (7)
  - Off label use [Unknown]
  - Throat irritation [Unknown]
  - Palpitations [Unknown]
  - Tachycardia [Unknown]
  - Chest discomfort [Unknown]
  - Anxiety [Unknown]
  - Bruxism [Unknown]

NARRATIVE: CASE EVENT DATE: 20220325
